FAERS Safety Report 14907725 (Version 1)
Quarter: 2018Q2

REPORT INFORMATION
  Report Type: Report from Study
  Country: CN (occurrence: CN)
  Receive Date: 20180517
  Receipt Date: 20180517
  Transmission Date: 20180711
  Serious: Yes (Other)
  Sender: FDA-Public Use
  Company Number: CN-ROCHE-2122184

PATIENT

DRUGS (5)
  1. APREPITANT. [Concomitant]
     Active Substance: APREPITANT
  2. DEXAMETHASONE. [Concomitant]
     Active Substance: DEXAMETHASONE
     Route: 065
  3. CISPLATIN. [Suspect]
     Active Substance: CISPLATIN
     Indication: NASOPHARYNGEAL CANCER
     Dosage: DAY 1, 21 DAYS PER CYCLE
     Route: 041
  4. CAPECITABINE. [Suspect]
     Active Substance: CAPECITABINE
     Indication: NASOPHARYNGEAL CANCER
     Dosage: DAY 1 TO DAY 14, 21 DAYS PER CYCLE
     Route: 048
  5. MANNITOL. [Concomitant]
     Active Substance: MANNITOL

REACTIONS (7)
  - Leukopenia [Unknown]
  - Anaemia [Unknown]
  - Neutropenia [Unknown]
  - Febrile neutropenia [Unknown]
  - Vomiting [Unknown]
  - Electrolyte imbalance [Unknown]
  - Nausea [Unknown]
